FAERS Safety Report 7618687-9 (Version None)
Quarter: 2011Q3

REPORT INFORMATION
  Report Type: 
  Country: None (occurrence: None)
  Receive Date: 20110718
  Receipt Date: 20110708
  Transmission Date: 20111222
  Serious: Yes (Other)
  Sender: FDA-Public Use
  Company Number: US-BRACCO-005559

PATIENT
  Sex: Female
  Weight: 58.05 kg

DRUGS (86)
  1. MAGNEVIST [Suspect]
     Dates: start: 20030813, end: 20030813
  2. PROHANCE [Suspect]
     Indication: NUCLEAR MAGNETIC RESONANCE IMAGING
  3. MULTIHANCE [Suspect]
     Indication: PAIN
     Dosage: ^17^
     Route: 042
     Dates: start: 20080325, end: 20080325
  4. MULTIHANCE [Suspect]
     Indication: MUSCULAR WEAKNESS
     Route: 042
     Dates: start: 20080331, end: 20080331
  5. IMMUNOSUPPRESSANTS [Concomitant]
  6. CONTRAST MEDIA [Suspect]
     Indication: ARTERIOGRAM RENAL
  7. NEURONTIN [Concomitant]
  8. LIPITOR [Concomitant]
  9. OMNISCAN [Suspect]
     Indication: NUCLEAR MAGNETIC RESONANCE IMAGING
     Dates: start: 20011108, end: 20011108
  10. OMNISCAN [Suspect]
     Indication: HAEMORRHAGE INTRACRANIAL
     Route: 042
     Dates: start: 19970718, end: 19970718
  11. TIZANIDINE HCL [Concomitant]
  12. KLONOPIN [Concomitant]
  13. IMITREX [Concomitant]
  14. ACETAMINOPHEN AND OXYCODONE HCL [Concomitant]
  15. EPOGEN [Concomitant]
  16. MAGNEVIST [Suspect]
     Indication: MULTIPLE MYELOMA
     Route: 042
     Dates: start: 20061211
  17. MAGNEVIST [Suspect]
     Route: 042
     Dates: start: 20001221, end: 20001221
  18. MAGNEVIST [Suspect]
     Route: 042
     Dates: start: 20000830, end: 20000830
  19. MULTIHANCE [Suspect]
     Indication: MULTIPLE MYELOMA
     Dates: start: 20090103, end: 20090103
  20. CONTRAST MEDIA [Suspect]
     Indication: NUCLEAR MAGNETIC RESONANCE IMAGING
     Dates: start: 20020423, end: 20020423
  21. CONTRAST MEDIA [Suspect]
     Indication: KIDNEY ANASTOMOSIS
     Dates: start: 20020423, end: 20020423
  22. PREDNISONE [Concomitant]
  23. ATIVAN [Concomitant]
  24. OMNISCAN [Suspect]
     Indication: MULTIPLE MYELOMA
     Dates: start: 20010305, end: 20010305
  25. CHLORTHALIDONE [Concomitant]
  26. LOPRESSOR [Concomitant]
  27. THALOMID [Concomitant]
  28. MAGNEVIST [Suspect]
     Indication: RENAL VEIN THROMBOSIS
     Route: 042
     Dates: start: 20010103, end: 20010103
  29. PROCRIT [Concomitant]
     Dates: start: 19990101
  30. COUMADIN [Concomitant]
     Dates: start: 19990101
  31. OMNISCAN [Suspect]
     Indication: NUCLEAR MAGNETIC RESONANCE IMAGING BRAIN
     Dates: start: 19980601, end: 19980601
  32. NEPHROCAPS [Concomitant]
     Dates: start: 20090101
  33. GABAPENTIN [Concomitant]
  34. RENAPHRO [Concomitant]
  35. ROCALTROL [Concomitant]
  36. ACYCLOVIR [Concomitant]
  37. SODIUM BICARBONATE [Concomitant]
  38. MAGNEVIST [Suspect]
     Indication: INTERVERTEBRAL DISC PROTRUSION
     Dates: start: 20020910, end: 20020910
  39. LASIX [Concomitant]
  40. OXYCONTIN [Concomitant]
  41. CALCITRIOL [Concomitant]
  42. OMNISCAN [Suspect]
     Indication: DISEASE PROGRESSION
     Dates: start: 20011030, end: 20011030
  43. FUROSEMIDE [Concomitant]
  44. IMMUNE GLOBULIN NOS [Concomitant]
  45. ZOLOFT [Concomitant]
  46. MARINOL [Concomitant]
  47. CONTRAST MEDIA [Suspect]
     Indication: ANGIOGRAM
     Dates: start: 20000323, end: 20000323
  48. RANITIDINE [Concomitant]
  49. OMNISCAN [Suspect]
     Indication: NUCLEAR MAGNETIC RESONANCE IMAGING ABDOMINAL
     Dates: start: 20000323, end: 20000323
  50. PROGRAF [Concomitant]
  51. ALUMINIUM OXIDE [Concomitant]
  52. PRILOSEC [Concomitant]
  53. MYCELEX [Concomitant]
  54. FAMVIR [Concomitant]
  55. OXYCODONE HCL [Concomitant]
  56. MAGNEVIST [Suspect]
     Indication: RENAL FAILURE
     Route: 042
     Dates: start: 20040102, end: 20040102
  57. MAGNEVIST [Suspect]
     Indication: BACK PAIN
     Route: 042
     Dates: start: 20021230, end: 20021230
  58. OPTIMARK [Suspect]
     Indication: NUCLEAR MAGNETIC RESONANCE IMAGING
  59. MULTIHANCE [Suspect]
     Indication: NUCLEAR MAGNETIC RESONANCE IMAGING BRAIN
     Route: 042
     Dates: start: 20080111, end: 20080111
  60. METOPROLOL TARTRATE [Concomitant]
     Dates: start: 20090101
  61. CONTRAST MEDIA [Suspect]
     Indication: MULTIPLE MYELOMA
     Dates: start: 19990915, end: 19990915
  62. CONTRAST MEDIA [Suspect]
     Indication: RENAL TRANSPLANT
     Dates: start: 20020423, end: 20020423
  63. ZETIA [Concomitant]
  64. DILANTIN [Concomitant]
  65. PAXIL [Concomitant]
  66. RENA-VITE [Concomitant]
  67. MAGNEVIST [Suspect]
     Indication: HEADACHE
     Route: 042
     Dates: start: 20020326
  68. CONTRAST MEDIA [Suspect]
     Indication: HAEMORRHAGE INTRACRANIAL
     Dates: start: 19990615, end: 19990615
  69. RENAGEL [Concomitant]
     Dates: start: 19990101
  70. ZOFRAN [Concomitant]
  71. SYNTHROID [Concomitant]
  72. OXYCODONE HCL AND ACETAMINOPHEN [Concomitant]
  73. FOSAMAX [Concomitant]
  74. ATENOLOL [Concomitant]
  75. MAGNEVIST [Suspect]
     Indication: NUCLEAR MAGNETIC RESONANCE IMAGING
     Route: 042
     Dates: start: 20020318, end: 20020318
  76. MAGNEVIST [Suspect]
     Indication: GAIT DISTURBANCE
     Dosage: ^14 ML AND 16 ML^
     Route: 042
     Dates: start: 20051215, end: 20051215
  77. MAGNEVIST [Suspect]
     Route: 042
     Dates: start: 20050629, end: 20050629
  78. MAGNEVIST [Suspect]
     Route: 042
     Dates: start: 20041203, end: 20041203
  79. MULTIHANCE [Suspect]
     Indication: NUCLEAR MAGNETIC RESONANCE IMAGING
     Route: 042
     Dates: start: 20080103, end: 20080103
  80. AMITRIPTYLINE HCL [Concomitant]
  81. CLARITIN [Concomitant]
  82. NEPHROVITE [Concomitant]
  83. CELLCEPT [Concomitant]
  84. PHOSLO [Concomitant]
  85. SENOKOT [Concomitant]
  86. PROCRIT [Concomitant]

REACTIONS (1)
  - NEPHROGENIC SYSTEMIC FIBROSIS [None]
